FAERS Safety Report 5374035-9 (Version None)
Quarter: 2007Q2

REPORT INFORMATION
  Report Type: 
  Country: None (occurrence: None)
  Receive Date: 20070627
  Receipt Date: 20070618
  Transmission Date: 20071010
  Serious: No
  Sender: FDA-Public Use
  Company Number: 163-20785-07051068

PATIENT
  Sex: Male

DRUGS (7)
  1. THALOMID [Suspect]
     Indication: MULTIPLE MYELOMA
     Dosage: 200MG - 100MG, DAILY, ORAL
     Route: 048
     Dates: start: 20050725, end: 20070424
  2. ZOMETA [Concomitant]
  3. OMEPRAZOLE [Concomitant]
  4. LEVOTHYROXINE SODIUM [Concomitant]
  5. DECADRON [Concomitant]
  6. BICLUTAMIDE [Concomitant]
  7. SIMVASTIN [Concomitant]

REACTIONS (3)
  - NEUROPATHY [None]
  - ORCHIDECTOMY [None]
  - UNEVALUABLE EVENT [None]
